FAERS Safety Report 7261039-4 (Version None)
Quarter: 2011Q1

REPORT INFORMATION
  Report Type: 
  Country: None (occurrence: None)
  Receive Date: 20110130
  Receipt Date: 20101121
  Transmission Date: 20110831
  Serious: Yes (Hospitalization)
  Sender: FDA-Public Use
  Company Number: US-ABBOTT-10P-163-0687569-00

PATIENT
  Sex: Female
  Weight: 88.53 kg

DRUGS (2)
  1. DIOVAN [Concomitant]
     Indication: PRODUCT USED FOR UNKNOWN INDICATION
     Dates: end: 20101101
  2. HUMIRA [Suspect]
     Indication: RHEUMATOID ARTHRITIS
     Dosage: ONLY ONE DOSE
     Dates: start: 20101111

REACTIONS (5)
  - IRRITABILITY [None]
  - VISION BLURRED [None]
  - ANXIETY [None]
  - BLOOD PRESSURE INCREASED [None]
  - AMNESIA [None]
